FAERS Safety Report 16144781 (Version 1)
Quarter: 2019Q1

REPORT INFORMATION
  Report Type: Spontaneous
  Country: US (occurrence: US)
  Receive Date: 20190227
  Receipt Date: 20190227
  Transmission Date: 20190418
  Serious: No
  Sender: FDA-Public Use
  Company Number: None

PATIENT
  Age: 66 Year
  Sex: Female
  Weight: 59.87 kg

DRUGS (1)
  1. RASUVO [Suspect]
     Active Substance: METHOTREXATE SODIUM
     Indication: POLYMYOSITIS
     Dosage: ?          OTHER DOSE:150MG (0.3ML);?
     Route: 058
     Dates: start: 201902

REACTIONS (1)
  - Surgery [None]
